FAERS Safety Report 12321676 (Version 1)
Quarter: 2016Q2

REPORT INFORMATION
  Report Type: Spontaneous
  Country: US (occurrence: None)
  Receive Date: 20160429
  Receipt Date: 20160429
  Transmission Date: 20160815
  Serious: Yes (Other)
  Sender: FDA-Public Use
  Company Number: None

PATIENT
  Age: 26 Year
  Sex: Female
  Weight: 68.04 kg

DRUGS (2)
  1. PRENATAL VITAMINS [Concomitant]
     Active Substance: VITAMINS
  2. EQUATE DRY SCALP DANDRUFF [Suspect]
     Active Substance: PYRITHIONE ZINC
     Indication: DANDRUFF
     Dosage: 1 DOLLOP ONCE A DAY APPLIED TO A SURFACE, USUALLY THE SKIN
     Route: 061
     Dates: start: 20160427, end: 20160427

REACTIONS (1)
  - Application site pain [None]

NARRATIVE: CASE EVENT DATE: 20160427
